FAERS Safety Report 20425118 (Version 1)
Quarter: 2022Q1

REPORT INFORMATION
  Report Type: Report from Study
  Country: US (occurrence: US)
  Receive Date: 20220204
  Receipt Date: 20220204
  Transmission Date: 20220423
  Serious: No
  Sender: FDA-Public Use
  Company Number: US-EXELIXIS-CABO-21037030

PATIENT
  Age: 82 Year
  Sex: Female

DRUGS (2)
  1. CABOMETYX [Suspect]
     Active Substance: CABOZANTINIB S-MALATE
     Indication: Renal cell carcinoma
     Dosage: 20 MG
     Route: 048
     Dates: start: 20210124
  2. CABOMETYX [Suspect]
     Active Substance: CABOZANTINIB S-MALATE
     Dosage: 40MG QD FOR 2 DAYS FOLLOWED BY 20MG ON THE 3RD DAY AND CONTINUES TO TAKE IT IN THIS ALTERNATING WAY
     Route: 048

REACTIONS (7)
  - Oesophagitis [Unknown]
  - Dysphagia [Unknown]
  - Memory impairment [Unknown]
  - Fatigue [Unknown]
  - Diarrhoea [Unknown]
  - Product dose omission issue [Unknown]
  - Inappropriate schedule of product administration [Unknown]

NARRATIVE: CASE EVENT DATE: 20210124
